FAERS Safety Report 8328163-6 (Version None)
Quarter: 2012Q2

REPORT INFORMATION
  Report Type: 
  Country: None (occurrence: None)
  Receive Date: 20120502
  Receipt Date: 20120430
  Transmission Date: 20120825
  Serious: Yes (Other)
  Sender: FDA-Public Use
  Company Number: PHEH2012US006023

PATIENT
  Sex: Female

DRUGS (17)
  1. METOPROLOL TARTRATE [Concomitant]
  2. VITAMIN D [Concomitant]
  3. SIMVASTATIN [Concomitant]
  4. FOLIC ACID [Concomitant]
  5. VITAMIN B6 [Concomitant]
  6. PROMETHAZINE [Concomitant]
  7. RECLAST [Suspect]
     Indication: OSTEOPOROSIS
     Dosage: UNK UKN, UNK
     Route: 042
     Dates: start: 20111123
  8. FISH OIL [Concomitant]
  9. OXYCODONE HCL [Concomitant]
  10. PLAVIX [Concomitant]
  11. EYE DROPS [Concomitant]
  12. VITAMIN C [Concomitant]
  13. VITAMIN D [Concomitant]
  14. LISINOPRIL [Concomitant]
  15. CITALOPRAM [Concomitant]
  16. CALCIUM [Concomitant]
  17. VITAMIN B-12 [Concomitant]

REACTIONS (1)
  - HIP FRACTURE [None]
